FAERS Safety Report 6282138-X (Version None)
Quarter: 2009Q3

REPORT INFORMATION
  Report Type: 
  Country: None (occurrence: None)
  Receive Date: 20090724
  Receipt Date: 20090716
  Transmission Date: 20100115
  Serious: Yes (Other)
  Sender: FDA-Public Use
  Company Number: US-CELGENEUS-163-21880-09071280

PATIENT
  Sex: Female

DRUGS (5)
  1. REVLIMID [Suspect]
     Indication: MULTIPLE MYELOMA
     Route: 048
     Dates: start: 20090301, end: 20090101
  2. REVLIMID [Suspect]
     Route: 048
     Dates: start: 20080901, end: 20080101
  3. REVLIMID [Suspect]
     Route: 048
     Dates: start: 20081201
  4. REVLIMID [Suspect]
     Route: 048
     Dates: start: 20090301, end: 20090301
  5. REVLIMID [Suspect]
     Route: 048
     Dates: start: 20090701

REACTIONS (1)
  - HERNIA REPAIR [None]
